FAERS Safety Report 6380972-9 (Version None)
Quarter: 2009Q3

REPORT INFORMATION
  Report Type: 
  Country: None (occurrence: None)
  Receive Date: 20090924
  Receipt Date: 20090921
  Transmission Date: 20100115
  Serious: Yes (Life-Threatening, Disabling)
  Sender: FDA-Public Use
  Company Number: 2009-03829

PATIENT
  Age: 52 Year
  Sex: Female
  Weight: 62 kg

DRUGS (3)
  1. VELCADE [Suspect]
     Indication: MULTIPLE MYELOMA
     Dosage: 1.3 MG/M2,  INTRAVENOUS
     Route: 042
     Dates: start: 20090701, end: 20090915
  2. MELPHALAN HYDROCHLORIDE [Suspect]
     Indication: MULTIPLE MYELOMA
     Dosage: 9 MG/M2
     Dates: start: 20090815, end: 20090818
  3. PREDNISOLONE TAB [Suspect]
     Indication: MULTIPLE MYELOMA
     Dosage: 60 MG/M2
     Dates: start: 20090815, end: 20090818

REACTIONS (2)
  - CHEST DISCOMFORT [None]
  - STEVENS-JOHNSON SYNDROME [None]
